FAERS Safety Report 10284693 (Version 2)
Quarter: 2014Q3

REPORT INFORMATION
  Report Type: Spontaneous
  Country: IL (occurrence: IL)
  Receive Date: 20140708
  Receipt Date: 20140708
  Transmission Date: 20150326
  Serious: Yes (Other)
  Sender: FDA-Public Use
  Company Number: IL-VERTEX PHARMACEUTICALS (CANADA)-2014-002108

PATIENT
  Sex: Male

DRUGS (3)
  1. INCIVO [Suspect]
     Active Substance: TELAPREVIR
     Indication: PRODUCT USED FOR UNKNOWN INDICATION
     Dosage: UNK
     Route: 048
     Dates: end: 20140505
  2. ATACAND [Suspect]
     Active Substance: CANDESARTAN CILEXETIL
     Indication: PRODUCT USED FOR UNKNOWN INDICATION
     Dosage: UNK
     Route: 065
  3. NORVASC [Suspect]
     Active Substance: AMLODIPINE BESYLATE
     Indication: PRODUCT USED FOR UNKNOWN INDICATION
     Dosage: UNK
     Route: 065

REACTIONS (10)
  - Blood pressure increased [Recovering/Resolving]
  - Blood pressure fluctuation [Unknown]
  - Somnolence [Unknown]
  - Painful defaecation [Unknown]
  - Fatigue [Unknown]
  - Anal haemorrhage [Unknown]
  - Depressed mood [Unknown]
  - Rash [Unknown]
  - Haemoglobin decreased [Unknown]
  - Heart rate increased [Recovering/Resolving]
